FAERS Safety Report 25483069 (Version 1)
Quarter: 2025Q2

REPORT INFORMATION
  Report Type: Other
  Country: JP (occurrence: JP)
  Receive Date: 20250626
  Receipt Date: 20250626
  Transmission Date: 20250717
  Serious: Yes (Other)
  Sender: CREEKWOOD PHARMACEUTICALS LLC
  Company Number: JP-Creekwood Pharmaceuticals LLC-2179436

PATIENT
  Age: 8 Decade
  Sex: Female

DRUGS (7)
  1. PREGABALIN [Suspect]
     Active Substance: PREGABALIN
     Indication: Back pain
  2. MIROGABALIN [Suspect]
     Active Substance: MIROGABALIN
  3. ACETAMINOPHEN [Concomitant]
     Active Substance: ACETAMINOPHEN
  4. QUETIAPINE [Concomitant]
     Active Substance: QUETIAPINE
  5. OLANZAPINE [Concomitant]
     Active Substance: OLANZAPINE
  6. HERBALS [Concomitant]
     Active Substance: HERBALS
  7. DONEPEZIL [Concomitant]
     Active Substance: DONEPEZIL

REACTIONS (3)
  - Psychotic disorder [Recovered/Resolved]
  - Product use in unapproved indication [Unknown]
  - Cognitive disorder [Recovered/Resolved]
